FAERS Safety Report 25519039 (Version 2)
Quarter: 2025Q3

REPORT INFORMATION
  Report Type: Spontaneous
  Country: JP (occurrence: JP)
  Receive Date: 20250704
  Receipt Date: 20250811
  Transmission Date: 20251020
  Serious: Yes (Other)
  Sender: ROCHE
  Company Number: JP-CHUGAI-2023038619

PATIENT
  Age: 76 Year
  Sex: Male

DRUGS (4)
  1. ACTEMRA [Suspect]
     Active Substance: TOCILIZUMAB
     Indication: Castleman^s disease
     Route: 042
     Dates: start: 202303, end: 202505
  2. RITUXAN [Suspect]
     Active Substance: RITUXIMAB
     Indication: Castleman^s disease
     Route: 042
     Dates: start: 202301
  3. PREDNISOLONE [Concomitant]
     Active Substance: PREDNISOLONE
     Indication: Castleman^s disease
     Dosage: PERORAL AGENT
     Route: 048
     Dates: start: 201902
  4. PREDNISOLONE [Concomitant]
     Active Substance: PREDNISOLONE
     Indication: Haemolytic anaemia
     Dosage: PERORAL AGENT
     Route: 048
     Dates: start: 201902

REACTIONS (3)
  - Atypical mycobacterial infection [Unknown]
  - Granuloma [Unknown]
  - Off label use [Unknown]
